FAERS Safety Report 8115005-7 (Version None)
Quarter: 2012Q1

REPORT INFORMATION
  Report Type: 
  Country: None (occurrence: None)
  Receive Date: 20120127
  Receipt Date: 20120116
  Transmission Date: 20120608
  Serious: Yes (Hospitalization)
  Sender: FDA-Public Use
  Company Number: 2012030837

PATIENT
  Age: 36 Year
  Sex: Female

DRUGS (1)
  1. VIVAGLOBIN [Suspect]
     Indication: PRIMARY IMMUNODEFICIENCY SYNDROME
     Dosage: 8 G 1X/WEEK, 16% SUBCUTANEOUS
     Route: 058
     Dates: start: 20100511

REACTIONS (3)
  - MALAISE [None]
  - VISION BLURRED [None]
  - PALPITATIONS [None]
